FAERS Safety Report 6752026-0 (Version None)
Quarter: 2010Q2

REPORT INFORMATION
  Report Type: 
  Country: None (occurrence: None)
  Receive Date: 20100602
  Receipt Date: 20100528
  Transmission Date: 20101027
  Serious: Yes (Other)
  Sender: FDA-Public Use
  Company Number: CA-MERCK-0908CAN00072

PATIENT
  Sex: Male

DRUGS (4)
  1. PROSCAR [Suspect]
     Route: 048
     Dates: start: 20060101
  2. ROSUVASTATIN CALCIUM [Concomitant]
     Route: 065
  3. TAMSULOSIN HYDROCHLORIDE [Concomitant]
     Route: 065
  4. WARFARIN SODIUM [Concomitant]
     Route: 065
     Dates: start: 20090501

REACTIONS (3)
  - CARDIAC DISORDER [None]
  - NIPPLE PAIN [None]
  - PRURITUS [None]
